FAERS Safety Report 9101833 (Version 2)
Quarter: 2013Q1

REPORT INFORMATION
  Report Type: Spontaneous
  Country: PL (occurrence: PL)
  Receive Date: 20130218
  Receipt Date: 20130304
  Transmission Date: 20140127
  Serious: Yes (Life-Threatening, Hospitalization)
  Sender: FDA-Public Use
  Company Number: PL-ABBOTT-13P-129-1050668-00

PATIENT
  Age: 48 Year
  Sex: Female

DRUGS (4)
  1. SOTALOL [Suspect]
     Indication: ARRHYTHMIA
  2. CLARITHROMYCIN [Interacting]
     Indication: BRONCHITIS
  3. SALBUTAMOLUM [Interacting]
     Indication: BRONCHITIS
     Route: 055
  4. HERBAL NOS [Interacting]
     Indication: WEIGHT DECREASED

REACTIONS (9)
  - Loss of consciousness [Recovered/Resolved]
  - Electrocardiogram QT prolonged [Recovered/Resolved]
  - Hypokalaemia [Recovered/Resolved]
  - Drug interaction [Recovered/Resolved]
  - Pyrexia [Recovered/Resolved]
  - Cough [Recovered/Resolved]
  - Bronchitis [Recovered/Resolved]
  - Ventricular tachycardia [Recovered/Resolved]
  - Torsade de pointes [Recovered/Resolved]
